FAERS Safety Report 12838485 (Version 1)
Quarter: 2016Q4

REPORT INFORMATION
  Report Type: Spontaneous
  Country: US (occurrence: US)
  Receive Date: 20161010
  Receipt Date: 20161010
  Transmission Date: 20170207
  Serious: No
  Sender: FDA-Public Use
  Company Number: None

PATIENT
  Age: 65 Year
  Sex: Female

DRUGS (9)
  1. XALATAN OPTHAL DROP [Concomitant]
  2. NITROFURANTOIN. [Concomitant]
     Active Substance: NITROFURANTOIN
  3. PRINICID [Concomitant]
  4. AMPYRA [Suspect]
     Active Substance: DALFAMPRIDINE
     Indication: MULTIPLE SCLEROSIS
     Route: 048
     Dates: start: 201406
  5. KEFLEX [Concomitant]
     Active Substance: CEPHALEXIN
  6. BACLOFEN. [Concomitant]
     Active Substance: BACLOFEN
  7. SOCEPT OPTHAL DROP [Concomitant]
  8. TECFIDERA [Concomitant]
     Active Substance: DIMETHYL FUMARATE
  9. ALPHAGAN OPTHAL DROP [Concomitant]

REACTIONS (4)
  - Pollakiuria [None]
  - Dysuria [None]
  - Urinary tract infection [None]
  - Laboratory test abnormal [None]

NARRATIVE: CASE EVENT DATE: 20160914
